FAERS Safety Report 19669175 (Version 10)
Quarter: 2021Q3

REPORT INFORMATION
  Report Type: Report from Study
  Country: KR (occurrence: KR)
  Receive Date: 20210806
  Receipt Date: 20210923
  Transmission Date: 20211014
  Serious: Yes (Hospitalization)
  Sender: FDA-Public Use
  Company Number: KR-EISAI MEDICAL RESEARCH-EC-2021-097245

PATIENT
  Age: 14 Year
  Sex: Male
  Weight: 20.7 kg

DRUGS (10)
  1. URSA [Concomitant]
     Active Substance: URSODIOL
     Dates: start: 20210317
  2. DENOGAN [Concomitant]
     Active Substance: PROPACETAMOL HYDROCHLORIDE
     Dates: start: 20210714, end: 20210714
  3. ONSERAN [Concomitant]
     Dates: start: 20210722
  4. DEFERASIROX. [Concomitant]
     Active Substance: DEFERASIROX
     Dates: start: 20210507
  5. NORVASC [Concomitant]
     Active Substance: AMLODIPINE BESYLATE
     Dates: start: 20210721, end: 20210726
  6. GASTER [Concomitant]
     Active Substance: FAMOTIDINE
     Dates: start: 20210714
  7. NAXEN?F [Concomitant]
     Dates: start: 20210714
  8. LENVATINIB [Suspect]
     Active Substance: LENVATINIB
     Indication: NEUROBLASTOMA
     Route: 048
     Dates: start: 20210714
  9. PENTAMIDINE ISETHIONATE. [Concomitant]
     Active Substance: PENTAMIDINE ISETHIONATE
     Dates: start: 20200713
  10. SETOPEN [Concomitant]
     Dates: start: 20210714

REACTIONS (2)
  - Pyrexia [Recovered/Resolved]
  - Decreased appetite [Recovered/Resolved]

NARRATIVE: CASE EVENT DATE: 20210723
